FAERS Safety Report 16806694 (Version 2)
Quarter: 2019Q3

REPORT INFORMATION
  Report Type: Spontaneous
  Country: US (occurrence: US)
  Receive Date: 20190913
  Receipt Date: 20190918
  Transmission Date: 20191005
  Serious: No
  Sender: FDA-Public Use
  Company Number: US-PFIZER INC-2017166998

PATIENT
  Age: 69 Year
  Sex: Female

DRUGS (18)
  1. LYRICA [Suspect]
     Active Substance: PREGABALIN
     Indication: POLYNEUROPATHY
     Dosage: 75 MG, 2X/DAY (1 CAPSULE BY MOUTH 2 TIMES DAILY)
     Route: 048
  2. PRILOSEC [Concomitant]
     Active Substance: OMEPRAZOLE MAGNESIUM
     Dosage: 20 MG, DAILY
     Route: 048
  3. COLACE [Concomitant]
     Active Substance: DOCUSATE SODIUM
     Dosage: 100 MG, AS NEEDED [TAKE 100 MG BY MOUTH 2 TIMES DAILY AS NEEDED]
     Route: 048
  4. LYRICA [Suspect]
     Active Substance: PREGABALIN
     Indication: METASTASES TO BONE
     Dosage: 100 MG, 3X/DAY (1 CAPSULE BY MOUTH 3 TIMES DAILY)
     Route: 048
  5. CIPRO [Concomitant]
     Active Substance: CIPROFLOXACIN HYDROCHLORIDE
     Dosage: 500 MG, 2X/DAY (TAKE 1 TABLET BY MOUTH 2 TIMES DAILY  FOR 7 DAYS)
     Route: 048
  6. SYNTHROID [Concomitant]
     Active Substance: LEVOTHYROXINE SODIUM
     Dosage: 50 UG, DAILY
     Route: 048
  7. AMBIEN [Concomitant]
     Active Substance: ZOLPIDEM TARTRATE
     Indication: SLEEP DISORDER
     Dosage: 10 MG, AS NEEDED [1 TABLET BY MOUTH NIGHTLY AS NEEDED FOR SLEEP]
     Route: 048
  8. NORCO [Concomitant]
     Active Substance: ACETAMINOPHEN\HYDROCODONE BITARTRATE
     Indication: PAIN
     Dosage: UNK UNK, AS NEEDED [10-325 MG PER TABLET] [TAKE 1 TABLET BY MOUTH EVERY 6 HOURS AS NEEDED ]
     Route: 048
  9. PRINZIDE, ZESTRORETIC [Concomitant]
     Dosage: UNK UNK, DAILY (10-12.5 MG/TAKE 1 TABLET DAILY)
  10. GLYCOLAX [Concomitant]
     Active Substance: POLYETHYLENE GLYCOL 3350
     Indication: CONSTIPATION
     Dosage: 17 G, AS NEEDED [TAKE 17 G BY MOUTH DAILY AS NEEDED FOR CONSTIPATION]
     Route: 048
  11. LYRICA [Suspect]
     Active Substance: PREGABALIN
     Indication: LUNG NEOPLASM MALIGNANT
     Dosage: 250 MG, DAILY [TAKE 2 TABLETS AT AM, ONE TABLET AT NOON AND 2 TABLETS EVERY MORNING]
     Route: 048
  12. ZOFRAN [Concomitant]
     Active Substance: ONDANSETRON HYDROCHLORIDE
     Indication: ANXIETY
  13. ZOFRAN [Concomitant]
     Active Substance: ONDANSETRON HYDROCHLORIDE
     Indication: SLEEP DISORDER
     Dosage: 8 MG, AS NEEDED [TAKE 1 TABLET BY MOUTH 3 TIMES DAILY AS NEEDED]
     Route: 048
  14. COMPAZINE [Concomitant]
     Active Substance: PROCHLORPERAZINE MALEATE
     Dosage: 10 MG, AS NEEDED [TAKE 1 TABLET BY MOUTH EVERY 6 HOURS AS NEEDED]
     Route: 048
  15. LYRICA [Suspect]
     Active Substance: PREGABALIN
     Dosage: 200 MG, DAILY [TAKE ONE TABLET ORALLY MORNING AND AFTERNOON AND TWO TABLETS AT BEDTIME]
     Route: 048
  16. CYMBALTA [Concomitant]
     Active Substance: DULOXETINE HYDROCHLORIDE
     Dosage: 20 MG, DAILY
     Route: 048
  17. NEURONTIN [Concomitant]
     Active Substance: GABAPENTIN
     Dosage: 300 MG, 2X/DAY
     Route: 048
  18. ZOCOR [Concomitant]
     Active Substance: SIMVASTATIN
     Dosage: 40 MG, 1X/DAY (TAKE 1 TABLET NIGHTLY)

REACTIONS (1)
  - Drug ineffective [Unknown]
